FAERS Safety Report 4524872-5 (Version None)
Quarter: 2004Q4

REPORT INFORMATION
  Report Type: 
  Country: None (occurrence: None)
  Receive Date: 20041213
  Receipt Date: 20041201
  Transmission Date: 20050328
  Serious: Yes (Other)
  Sender: FDA-Public Use
  Company Number: GB-BRISTOL-MYERS SQUIBB COMPANY-12779898

PATIENT
  Age: 51 Year
  Sex: Female

DRUGS (2)
  1. CISPLATIN [Suspect]
     Indication: TONSIL CANCER
  2. CYCLIZINE [Concomitant]

REACTIONS (4)
  - DEAFNESS [None]
  - DIZZINESS [None]
  - FALL [None]
  - TINNITUS [None]
